FAERS Safety Report 10239850 (Version 2)
Quarter: 2014Q2

REPORT INFORMATION
  Report Type: Report from Study
  Country: US (occurrence: US)
  Receive Date: 20140616
  Receipt Date: 20140626
  Transmission Date: 20141212
  Serious: Yes (Other)
  Sender: FDA-Public Use
  Company Number: US-BAXTER-2014BAX030679

PATIENT
  Sex: Female

DRUGS (8)
  1. GAMMAGARD LIQUID [Suspect]
     Indication: IMMUNODEFICIENCY COMMON VARIABLE
     Route: 042
     Dates: start: 201110
  2. GAMMAGARD LIQUID [Suspect]
     Indication: IMMUNODEFICIENCY COMMON VARIABLE
     Route: 065
  3. HIZENTRA [Suspect]
     Indication: IMMUNODEFICIENCY COMMON VARIABLE
     Route: 058
  4. AUGMENTIN [Concomitant]
     Indication: IMMUNODEFICIENCY
  5. TYLENOL [Concomitant]
     Indication: PREMEDICATION
     Route: 065
  6. TYLENOL [Concomitant]
     Indication: CHILLS
  7. BENADRYL [Concomitant]
     Indication: PREMEDICATION
     Route: 065
  8. BENADRYL [Concomitant]
     Indication: CHILLS

REACTIONS (10)
  - Fungal infection [Not Recovered/Not Resolved]
  - Respiratory muscle weakness [Not Recovered/Not Resolved]
  - Bronchitis [Recovered/Resolved]
  - Sinusitis [Recovered/Resolved]
  - Condition aggravated [Not Recovered/Not Resolved]
  - Depressed level of consciousness [Not Recovered/Not Resolved]
  - Chills [Recovered/Resolved]
  - Pyrexia [Recovered/Resolved]
  - Gastrointestinal motility disorder [Not Recovered/Not Resolved]
  - Memory impairment [Not Recovered/Not Resolved]
